FAERS Safety Report 16460015 (Version 1)
Quarter: 2019Q2

REPORT INFORMATION
  Report Type: Spontaneous
  Country: JP (occurrence: JP)
  Receive Date: 20190620
  Receipt Date: 20190620
  Transmission Date: 20190711
  Serious: Yes (Hospitalization, Other)
  Sender: FDA-Public Use
  Company Number: JP-OTSUKA-2019_022112

PATIENT
  Age: 37 Year
  Sex: Female

DRUGS (2)
  1. QUETIAPINE. [Suspect]
     Active Substance: QUETIAPINE
     Indication: PRODUCT USED FOR UNKNOWN INDICATION
     Dosage: 100 UNIT UNK, DAILY
     Route: 048
     Dates: start: 2011, end: 201810
  2. ABILIFY [Suspect]
     Active Substance: ARIPIPRAZOLE
     Indication: PRODUCT USED FOR UNKNOWN INDICATION
     Dosage: 3 UNIT UNK, DAILY
     Route: 048
     Dates: start: 201806, end: 201810

REACTIONS (2)
  - Diabetic ketoacidosis [Recovering/Resolving]
  - Blood insulin decreased [Recovering/Resolving]

NARRATIVE: CASE EVENT DATE: 201810
